FAERS Safety Report 4283721-3 (Version None)
Quarter: 2004Q1

REPORT INFORMATION
  Report Type: 
  Country: None (occurrence: None)
  Receive Date: 20040129
  Receipt Date: 20040129
  Transmission Date: 20041129
  Serious: Yes (Hospitalization)
  Sender: FDA-Public Use
  Company Number: None

PATIENT
  Age: 45 Year
  Sex: Male
  Weight: 103.4 kg

DRUGS (2)
  1. LOVENOX [Suspect]
     Indication: DEEP VENOUS THROMBOSIS PROPHYLAXIS
     Dosage: 30 MG SQ BID
     Route: 058
     Dates: start: 20030619
  2. OXYCODONE HCL [Concomitant]

REACTIONS (5)
  - CONVULSION [None]
  - FATIGUE [None]
  - MYOCLONUS [None]
  - SYNCOPE [None]
  - SYNCOPE VASOVAGAL [None]
